FAERS Safety Report 9353048 (Version 1)
Quarter: 2013Q2

REPORT INFORMATION
  Report Type: Spontaneous
  Country: US (occurrence: None)
  Receive Date: 20130617
  Receipt Date: 20130617
  Transmission Date: 20140414
  Serious: No
  Sender: FDA-Public Use
  Company Number: None

PATIENT
  Age: 26 Year
  Sex: 0

DRUGS (1)
  1. PROPECIA [Suspect]

REACTIONS (11)
  - Alopecia [None]
  - Penile curvature [None]
  - Male genital atrophy [None]
  - Muscle twitching [None]
  - Memory impairment [None]
  - Amnesia [None]
  - Feeling abnormal [None]
  - Visual acuity reduced [None]
  - Thinking abnormal [None]
  - Libido decreased [None]
  - Quality of life decreased [None]
